FAERS Safety Report 23293302 (Version 1)
Quarter: 2023Q4

REPORT INFORMATION
  Report Type: Spontaneous
  Country: NO (occurrence: NO)
  Receive Date: 20231213
  Receipt Date: 20231213
  Transmission Date: 20240109
  Serious: Yes (Other)
  Sender: FDA-Public Use
  Company Number: None

PATIENT
  Age: 21 Year
  Sex: Female
  Weight: 70 kg

DRUGS (2)
  1. NEURONTIN [Suspect]
     Active Substance: GABAPENTIN
     Indication: Trigeminal neuralgia
     Dosage: 900 MILLIGRAM, Q8H
     Route: 048
     Dates: start: 202310
  2. ACETAMINOPHEN [Concomitant]
     Active Substance: ACETAMINOPHEN
     Indication: Pain
     Dosage: UNK
     Route: 065
     Dates: start: 202310, end: 202310

REACTIONS (10)
  - Suicidal ideation [Recovering/Resolving]
  - Hallucination [Recovered/Resolved with Sequelae]
  - Speech disorder [Recovering/Resolving]
  - Persistent depressive disorder [Unknown]
  - Decreased appetite [Not Recovered/Not Resolved]
  - Lack of satiety [Not Recovered/Not Resolved]
  - Concomitant disease aggravated [Unknown]
  - Anxiety [Not Recovered/Not Resolved]
  - Arthralgia [Not Recovered/Not Resolved]
  - Coordination abnormal [Not Recovered/Not Resolved]

NARRATIVE: CASE EVENT DATE: 20231001
